FAERS Safety Report 20323793 (Version 1)
Quarter: 2022Q1

REPORT INFORMATION
  Report Type: Spontaneous
  Country: FR (occurrence: FR)
  Receive Date: 20220111
  Receipt Date: 20220111
  Transmission Date: 20220423
  Serious: Yes (Hospitalization)
  Sender: FDA-Public Use
  Company Number: FR-REDHILL BIOPHARMA-2022RDH00003

PATIENT
  Age: 75 Year
  Sex: Male
  Weight: 85 kg

DRUGS (4)
  1. NALOXEGOL OXALATE [Suspect]
     Active Substance: NALOXEGOL OXALATE
     Indication: Constipation
     Dosage: 25 MG, 1X/DAY
     Route: 048
     Dates: start: 20211022, end: 20211121
  2. BACTRIM [Suspect]
     Active Substance: SULFAMETHOXAZOLE\TRIMETHOPRIM
     Indication: Infection prophylaxis
     Dosage: 1 DOSAGE FORM
     Route: 048
     Dates: start: 20211001, end: 20211112
  3. LEUCOVORIN CALCIUM [Suspect]
     Active Substance: LEUCOVORIN CALCIUM
     Indication: Vitamin supplementation
     Dosage: 25 MG, 1X/WEEK
     Route: 048
     Dates: start: 20211001, end: 20211114
  4. VALACYCLOVIR HYDROCHLORIDE [Suspect]
     Active Substance: VALACYCLOVIR HYDROCHLORIDE
     Indication: Infection prophylaxis
     Dosage: 500 MG, 2X/DAY (EVERY 12 HOURS)
     Route: 048
     Dates: start: 20211001, end: 20211117

REACTIONS (1)
  - Rash maculo-papular [Recovering/Resolving]

NARRATIVE: CASE EVENT DATE: 20211108
